FAERS Safety Report 5973370-0 (Version None)
Quarter: 2008Q4

REPORT INFORMATION
  Report Type: 
  Country: None (occurrence: None)
  Receive Date: 20081201
  Receipt Date: 20081010
  Transmission Date: 20090506
  Serious: Yes (Other)
  Sender: FDA-Public Use
  Company Number: US-AMGEN-KDL303268

PATIENT
  Sex: Male
  Weight: 103.5 kg

DRUGS (4)
  1. ENBREL [Suspect]
     Indication: PSORIASIS
     Route: 058
     Dates: start: 20060801, end: 20080704
  2. ALEVE [Concomitant]
  3. TESTOSTERONE [Concomitant]
  4. DOVONEX [Concomitant]
     Route: 061

REACTIONS (32)
  - ASTHENIA [None]
  - BACK PAIN [None]
  - CEREBRAL ISCHAEMIA [None]
  - CERVICAL SPINAL STENOSIS [None]
  - CHILLS [None]
  - CONSTIPATION [None]
  - DEPRESSION [None]
  - DIARRHOEA [None]
  - DYSPHAGIA [None]
  - DYSPHEMIA [None]
  - FATIGUE [None]
  - GAIT DISTURBANCE [None]
  - HEAD TITUBATION [None]
  - HEADACHE [None]
  - HERPES ZOSTER [None]
  - HYPOAESTHESIA [None]
  - INFECTION [None]
  - MENTAL IMPAIRMENT [None]
  - MUSCLE SPASMS [None]
  - MUSCLE TWITCHING [None]
  - MUSCULOSKELETAL STIFFNESS [None]
  - MYOCLONUS [None]
  - NERVOUSNESS [None]
  - PNEUMONIA [None]
  - RADICULOPATHY [None]
  - SENSATION OF HEAVINESS [None]
  - SLEEP DISORDER [None]
  - SPINAL OSTEOARTHRITIS [None]
  - SPONDYLOLYSIS [None]
  - TREMOR [None]
  - VISION BLURRED [None]
  - WEIGHT DECREASED [None]
